FAERS Safety Report 12439098 (Version 2)
Quarter: 2016Q3

REPORT INFORMATION
  Report Type: Spontaneous
  Country: US (occurrence: US)
  Receive Date: 20160606
  Receipt Date: 20160707
  Transmission Date: 20161109
  Serious: Yes (Hospitalization)
  Sender: FDA-Public Use
  Company Number: US-VERTEX PHARMACEUTICALS-2016-003552

PATIENT
  Age: 26 Year
  Sex: Male

DRUGS (15)
  1. ORKAMBI [Suspect]
     Active Substance: IVACAFTOR\LUMACAFTOR
     Indication: CYSTIC FIBROSIS
     Dosage: 400-250 MG, BID
     Route: 048
     Dates: start: 20150824
  2. CREON [Concomitant]
     Active Substance: PANCRELIPASE AMYLASE\PANCRELIPASE LIPASE\PANCRELIPASE PROTEASE
  3. ADVAIR HFA [Concomitant]
     Active Substance: FLUTICASONE PROPIONATE\SALMETEROL XINAFOATE
     Dosage: 250/50
  4. CAYSTON [Concomitant]
     Active Substance: AZTREONAM
  5. PULMOZYME [Concomitant]
     Active Substance: DORNASE ALFA
  6. TOBI [Concomitant]
     Active Substance: TOBRAMYCIN
     Route: 055
  7. MEPHYTON [Concomitant]
     Active Substance: PHYTONADIONE
  8. PANTOPRAZOLE [Concomitant]
     Active Substance: PANTOPRAZOLE SODIUM
  9. AZITHROMYCIN ANHYDROUS. [Concomitant]
     Active Substance: AZITHROMYCIN ANHYDROUS
  10. PROVENTIL [Concomitant]
     Active Substance: ALBUTEROL
  11. ALBUTEROL. [Concomitant]
     Active Substance: ALBUTEROL
  12. COLISTIN [Concomitant]
     Active Substance: COLISTIN
  13. VITAMIN E [Concomitant]
     Active Substance: .ALPHA.-TOCOPHEROL
  14. MULTIVITAMIN [Concomitant]
     Active Substance: VITAMINS
  15. VITAMIN D [Concomitant]
     Active Substance: CHOLECALCIFEROL

REACTIONS (2)
  - Abdominal pain [Unknown]
  - Infective pulmonary exacerbation of cystic fibrosis [Recovering/Resolving]

NARRATIVE: CASE EVENT DATE: 20160425
